FAERS Safety Report 25236701 (Version 2)
Quarter: 2025Q3

REPORT INFORMATION
  Report Type: Spontaneous
  Country: US (occurrence: US)
  Receive Date: 20250424
  Receipt Date: 20250802
  Transmission Date: 20251021
  Serious: Yes (Hospitalization, Other)
  Sender: ALEXION PHARMACEUTICALS
  Company Number: US-AstraZeneca-CH-00852126A

PATIENT
  Sex: Female

DRUGS (1)
  1. TAGRISSO [Suspect]
     Active Substance: OSIMERTINIB
     Route: 065

REACTIONS (8)
  - Demyelination [Unknown]
  - Paraplegia [Unknown]
  - Neoplasm malignant [Unknown]
  - Spinal cord injury [Unknown]
  - Frustration tolerance decreased [Unknown]
  - Stress [Unknown]
  - Gait inability [Unknown]
  - Depression [Unknown]
